FAERS Safety Report 7442615-2 (Version None)
Quarter: 2011Q2

REPORT INFORMATION
  Report Type: 
  Country: None (occurrence: None)
  Receive Date: 20110425
  Receipt Date: 20110425
  Transmission Date: 20111010
  Serious: Yes (Life-Threatening, Hospitalization, Other)
  Sender: FDA-Public Use
  Company Number: None

PATIENT
  Age: 18 Year
  Sex: Male
  Weight: 142.8831 kg

DRUGS (2)
  1. PROZAC [Suspect]
     Indication: DEPRESSION
     Dosage: 450MG DAILY PO
     Route: 048
     Dates: start: 20101201, end: 20110201
  2. WELLBUTRIN [Concomitant]

REACTIONS (1)
  - SUICIDAL IDEATION [None]
